FAERS Safety Report 10226682 (Version 1)
Quarter: 2014Q2

REPORT INFORMATION
  Report Type: Spontaneous
  Country: US (occurrence: US)
  Receive Date: 20140609
  Receipt Date: 20140609
  Transmission Date: 20141212
  Serious: No
  Sender: FDA-Public Use
  Company Number: US-DRREDDYS-USA/USA/13/0029634

PATIENT
  Age: 56 Year
  Sex: Female

DRUGS (2)
  1. FEXOFENADINE HCL  OTC [Suspect]
     Indication: NASOPHARYNGITIS
     Route: 048
  2. ALKA SELTZER COLD PLUS [Concomitant]
     Indication: PRODUCT USED FOR UNKNOWN INDICATION
     Route: 065

REACTIONS (2)
  - Drug ineffective [Unknown]
  - Product quality issue [Unknown]
